FAERS Safety Report 16913269 (Version 1)
Quarter: 2020Q3

REPORT INFORMATION
  Report Type: Report from Study
  Country: US (occurrence: US)
  Receive Date: 20191014
  Receipt Date: 20191014
  Transmission Date: 20201104
  Serious: Yes (Hospitalization)
  Sender: FDA-Public Use
  Company Number: US-JNJFOC-20191010624

PATIENT
  Age: 59 Year
  Sex: Male

DRUGS (6)
  1. KAYEXALATE CALCIUM [Concomitant]
     Dosage: 30 MG, SINGLE
     Route: 048
     Dates: start: 20180324, end: 20180324
  2. SENOKOT [Concomitant]
     Active Substance: SENNOSIDES
     Dosage: 50?8.6 MG, DAILY  PRN
     Route: 048
     Dates: start: 20180324, end: 20180327
  3. OMEPRAZOLE. [Concomitant]
     Active Substance: OMEPRAZOLE
     Indication: DYSPEPSIA
     Dosage: UNK
     Dates: start: 20130326
  4. CIRMTUZUMAB. [Suspect]
     Active Substance: CIRMTUZUMAB
     Indication: CHRONIC LYMPHOCYTIC LEUKAEMIA
     Route: 042
  5. LEVOTHYROXINE. [Concomitant]
     Active Substance: LEVOTHYROXINE
     Indication: HYPOTHYROIDISM
     Dosage: UNK
  6. IBRUTINIB [Suspect]
     Active Substance: IBRUTINIB
     Indication: CHRONIC LYMPHOCYTIC LEUKAEMIA
     Route: 048
     Dates: start: 20180320

REACTIONS (2)
  - Hyperkalaemia [Recovered/Resolved]
  - Pyrexia [Recovered/Resolved]

NARRATIVE: CASE EVENT DATE: 20180324
